FAERS Safety Report 5635334-6 (Version None)
Quarter: 2008Q1

REPORT INFORMATION
  Report Type: 
  Country: None (occurrence: None)
  Receive Date: 20080222
  Receipt Date: 20080212
  Transmission Date: 20080703
  Serious: Yes (Other)
  Sender: FDA-Public Use
  Company Number: FR-PFIZER INC-2008004055

PATIENT
  Sex: Female

DRUGS (13)
  1. NEURONTIN [Suspect]
     Indication: MENINGIOMA SURGERY
  2. NEURONTIN [Suspect]
     Indication: EPILEPSY
  3. ALIMEMAZINE TARTRATE [Concomitant]
  4. SPECIAFOLDINE [Concomitant]
  5. POTASSIUM CHLORIDE [Concomitant]
  6. FUMAFER [Concomitant]
  7. ACETAMINOPHEN [Concomitant]
  8. IXEL [Concomitant]
  9. LEVETIRACETAM [Concomitant]
  10. DIOSMINE [Concomitant]
  11. LANSOPRAZOLE [Concomitant]
  12. LORAZEPAM [Concomitant]
  13. TRIAMTERENE AND HYDROCHLOROTHIAZIDE [Concomitant]

REACTIONS (3)
  - OPTIC NEUROPATHY [None]
  - VISUAL ACUITY REDUCED [None]
  - VISUAL FIELD DEFECT [None]
